FAERS Safety Report 17185899 (Version 1)
Quarter: 2019Q4

REPORT INFORMATION
  Report Type: Spontaneous
  Country: US (occurrence: US)
  Receive Date: 20191129
  Receipt Date: 20191129
  Transmission Date: 20200122
  Serious: No
  Sender: FDA-Public Use
  Company Number: None

PATIENT
  Age: 36 Year
  Sex: Female

DRUGS (1)
  1. AUBAGIO [Suspect]
     Active Substance: TERIFLUNOMIDE
     Route: 048
     Dates: start: 201710

REACTIONS (4)
  - Therapy cessation [None]
  - Product use issue [None]
  - Disease recurrence [None]
  - Limb discomfort [None]

NARRATIVE: CASE EVENT DATE: 20191129
